FAERS Safety Report 14107459 (Version 1)
Quarter: 2017Q4

REPORT INFORMATION
  Report Type: Spontaneous
  Country: US (occurrence: None)
  Receive Date: 20171019
  Receipt Date: 20171019
  Transmission Date: 20180321
  Serious: Yes (Life-Threatening, Hospitalization)
  Sender: FDA-Public Use
  Company Number: None

PATIENT
  Age: 80 Year
  Sex: Male
  Weight: 83.96 kg

DRUGS (1)
  1. WARFARIN [Suspect]
     Active Substance: WARFARIN
     Indication: ATRIAL FIBRILLATION
     Dosage: 2 + 3 MG OTHER PO
     Route: 048
     Dates: start: 20130425, end: 20170609

REACTIONS (4)
  - Anticoagulation drug level increased [None]
  - Haemoglobin decreased [None]
  - Chest wall haematoma [None]
  - International normalised ratio abnormal [None]

NARRATIVE: CASE EVENT DATE: 20170609
